FAERS Safety Report 23711692 (Version 1)
Quarter: 2024Q2

REPORT INFORMATION
  Report Type: Report from Study
  Country: US (occurrence: US)
  Receive Date: 20240405
  Receipt Date: 20240405
  Transmission Date: 20240716
  Serious: Yes (Disabling, Other)
  Sender: FDA-Public Use
  Company Number: US-SANOFI-01229584

PATIENT
  Age: 82 Year
  Sex: Female

DRUGS (2)
  1. DUPILUMAB [Suspect]
     Active Substance: DUPILUMAB
     Indication: Asthma
     Dosage: 600 MG, 1X
     Route: 058
     Dates: start: 20220728, end: 20220728
  2. DUPILUMAB [Suspect]
     Active Substance: DUPILUMAB
     Dosage: 300 MG, QOW
     Route: 058
     Dates: start: 2022

REACTIONS (7)
  - Deafness [Not Recovered/Not Resolved]
  - Aphasia [Not Recovered/Not Resolved]
  - Ulcer [Unknown]
  - Dyspnoea [Unknown]
  - Illness [Unknown]
  - Pruritus [Not Recovered/Not Resolved]
  - Rash [Unknown]

NARRATIVE: CASE EVENT DATE: 20240229
